FAERS Safety Report 14882734 (Version 1)
Quarter: 2018Q2

REPORT INFORMATION
  Report Type: Spontaneous
  Country: FR (occurrence: FR)
  Receive Date: 20180511
  Receipt Date: 20180511
  Transmission Date: 20180711
  Serious: Yes (Other)
  Sender: FDA-Public Use
  Company Number: FR-INDIVIOR LIMITED-INDV-110827-2018

PATIENT
  Age: 31 Year
  Sex: Male
  Weight: 63 kg

DRUGS (2)
  1. SUBUTEX [Suspect]
     Active Substance: BUPRENORPHINE HYDROCHLORIDE
     Indication: DRUG WITHDRAWAL MAINTENANCE THERAPY
     Dosage: UNK
     Route: 042
  2. HEROIN [Suspect]
     Active Substance: DIAMORPHINE
     Indication: DRUG DEPENDENCE
     Dosage: UNK
     Route: 042

REACTIONS (2)
  - Thrombophlebitis superficial [Recovered/Resolved]
  - Intentional product use issue [Unknown]

NARRATIVE: CASE EVENT DATE: 201705
